FAERS Safety Report 14423409 (Version 6)
Quarter: 2022Q3

REPORT INFORMATION
  Report Type: Spontaneous
  Country: US (occurrence: US)
  Receive Date: 20180123
  Receipt Date: 20220721
  Transmission Date: 20221027
  Serious: No
  Sender: FDA-Public Use
  Company Number: US-PFIZER INC-2018029043

PATIENT
  Age: 69 Year
  Sex: Female
  Weight: 79.3 kg

DRUGS (3)
  1. EFFEXOR XR [Suspect]
     Active Substance: VENLAFAXINE HYDROCHLORIDE
     Indication: Depression
     Dosage: 37.5 MG, DAILY
  2. EFFEXOR XR [Suspect]
     Active Substance: VENLAFAXINE HYDROCHLORIDE
     Dosage: 225 MG
  3. EFFEXOR XR [Suspect]
     Active Substance: VENLAFAXINE HYDROCHLORIDE
     Dosage: 300 MG, DAILY (QTY 180/DAYS SUPPLY 90; QTY 176/DAYS SUPPLY 88)

REACTIONS (5)
  - Drug ineffective [Unknown]
  - Malaise [Unknown]
  - Weight increased [Unknown]
  - Withdrawal syndrome [Unknown]
  - Prescribed overdose [Unknown]
